FAERS Safety Report 21583596 (Version 1)
Quarter: 2022Q4

REPORT INFORMATION
  Report Type: Spontaneous
  Country: US (occurrence: None)
  Receive Date: 20221110
  Receipt Date: 20221110
  Transmission Date: 20230113
  Serious: No
  Sender: FDA-Public Use
  Company Number: None

PATIENT
  Sex: Female

DRUGS (1)
  1. STELARA [Suspect]
     Active Substance: USTEKINUMAB
     Indication: Crohn^s disease
     Dosage: OTHER FREQUENCY : EVERY 8 WEEKS;?
     Route: 058
     Dates: start: 202204

REACTIONS (8)
  - Condition aggravated [None]
  - Abdominal pain [None]
  - Gastrointestinal pain [None]
  - Abdominal pain upper [None]
  - Pain [None]
  - Feeling abnormal [None]
  - Fatigue [None]
  - Drug ineffective [None]
